FAERS Safety Report 12111398 (Version 1)
Quarter: 2016Q1

REPORT INFORMATION
  Report Type: Spontaneous
  Country: RO (occurrence: RO)
  Receive Date: 20160224
  Receipt Date: 20160224
  Transmission Date: 20160526
  Serious: Yes (Life-Threatening)
  Sender: FDA-Public Use
  Company Number: RO-ELI_LILLY_AND_COMPANY-RO201602006389

PATIENT
  Age: 64 Year
  Sex: Female

DRUGS (7)
  1. ERBITUX [Suspect]
     Active Substance: CETUXIMAB
     Indication: RECTAL ADENOCARCINOMA
     Dosage: 400 MG/M2, UNK
     Route: 042
     Dates: start: 20160210, end: 20160210
  2. FOLINATE CALCIUM [Concomitant]
     Active Substance: LEUCOVORIN CALCIUM
     Indication: RECTAL ADENOCARCINOMA
     Dosage: 400 MG/M2, UNK
     Route: 042
     Dates: start: 20151208
  3. FLUOROURACIL. [Concomitant]
     Active Substance: FLUOROURACIL
     Indication: RECTAL ADENOCARCINOMA
     Dosage: 400 MG/M2, UNK
     Route: 040
     Dates: start: 20151208
  4. FLUOROURACIL. [Concomitant]
     Active Substance: FLUOROURACIL
     Dosage: 1200 MG/M2, UNK
     Dates: start: 20151208, end: 20160127
  5. ZARZIO [Concomitant]
     Active Substance: FILGRASTIM
     Indication: FEBRILE NEUTROPENIA
     Dosage: .5 ML, QD
     Route: 058
     Dates: start: 20160131, end: 20160203
  6. IRINOTECAN [Concomitant]
     Active Substance: IRINOTECAN
     Indication: RECTAL ADENOCARCINOMA
     Dosage: 180 MG/M2, UNK
     Route: 042
     Dates: start: 20151208
  7. ESSENTIAL PHOSPHOLIPIDS [Concomitant]
     Indication: PROPHYLAXIS
     Route: 048
     Dates: start: 201512

REACTIONS (3)
  - Agitation [Recovered/Resolved]
  - Oxygen saturation decreased [Recovered/Resolved]
  - Anaphylactic reaction [Recovered/Resolved]

NARRATIVE: CASE EVENT DATE: 20160210
